FAERS Safety Report 24256104 (Version 3)
Quarter: 2024Q4

REPORT INFORMATION
  Report Type: Spontaneous
  Country: JP (occurrence: JP)
  Receive Date: 20240827
  Receipt Date: 20241219
  Transmission Date: 20250115
  Serious: Yes (Hospitalization, Other)
  Sender: NOVARTIS
  Company Number: JP-MTPC-MTPC2024-0017790

PATIENT
  Age: 26 Year
  Sex: Female

DRUGS (3)
  1. FINGOLIMOD HYDROCHLORIDE [Suspect]
     Active Substance: FINGOLIMOD HYDROCHLORIDE
     Indication: Multiple sclerosis
     Dosage: 0.5 MG, QD (CAPSULE)
     Route: 048
     Dates: start: 20140607, end: 20201012
  2. INTERFERON BETA-1B [Concomitant]
     Active Substance: INTERFERON BETA-1B
     Indication: Product used for unknown indication
     Dosage: UNK
     Route: 065
  3. INTERFERON BETA-1B [Concomitant]
     Active Substance: INTERFERON BETA-1B
     Dosage: UNK
     Route: 065

REACTIONS (10)
  - Disorientation [Recovered/Resolved]
  - Acalculia [Recovered/Resolved]
  - Agraphia [Recovered/Resolved]
  - Neurologic neglect syndrome [Recovered/Resolved]
  - Dyslalia [Recovered/Resolved]
  - Hemiplegia [Recovered/Resolved]
  - Sensory disturbance [Recovered/Resolved]
  - Hemiplegia [Recovered/Resolved]
  - Lymphocyte count decreased [Recovered/Resolved]
  - Aphasia [Recovered/Resolved]

NARRATIVE: CASE EVENT DATE: 20140627
